FAERS Safety Report 13150757 (Version 1)
Quarter: 2017Q1

REPORT INFORMATION
  Report Type: Spontaneous
  Country: US (occurrence: US)
  Receive Date: 20170123
  Receipt Date: 20170123
  Transmission Date: 20170428
  Serious: Yes (Other)
  Sender: FDA-Public Use
  Company Number: None

PATIENT
  Age: 39 Year
  Sex: Female
  Weight: 81 kg

DRUGS (9)
  1. TRAMADOL HCL 50 MG [Suspect]
     Active Substance: TRAMADOL HYDROCHLORIDE
     Indication: BACK INJURY
     Dosage: ?          QUANTITY:2 TABLET(S);?
     Route: 048
     Dates: start: 20161223
  2. TRAMADOL HCL 50 MG [Suspect]
     Active Substance: TRAMADOL HYDROCHLORIDE
     Indication: PAIN
     Dosage: ?          QUANTITY:2 TABLET(S);?
     Route: 048
     Dates: start: 20161223
  3. GENERIC FOR PRILOSEC [Concomitant]
     Active Substance: OMEPRAZOLE
  4. GENERIC FOR NEURONTIN [Concomitant]
  5. GENERIC FOR ADVIL [Concomitant]
  6. GENERIC FOR LEXAPRO [Concomitant]
  7. TRAMADOL HCL 50 MG [Suspect]
     Active Substance: TRAMADOL HYDROCHLORIDE
     Indication: NECK INJURY
     Dosage: ?          QUANTITY:2 TABLET(S);?
     Route: 048
     Dates: start: 20161223
  8. SINUS RELIEF MEDICINE [Concomitant]
  9. GENERIC FOR TRAMADOL [Concomitant]

REACTIONS (3)
  - Drug effect decreased [None]
  - Abdominal discomfort [None]
  - Product substitution issue [None]
